FAERS Safety Report 11552213 (Version 1)
Quarter: 2015Q3

REPORT INFORMATION
  Report Type: Spontaneous
  Country: GR (occurrence: None)
  Receive Date: 20150923
  Receipt Date: 20150923
  Transmission Date: 20151125
  Serious: No
  Sender: FDA-Public Use
  Company Number: GR-2015-3883

PATIENT
  Age: 75 Year
  Sex: Female

DRUGS (9)
  1. TAVOR [Concomitant]
     Active Substance: LORAZEPAM
  2. CALCIORAL D3 (CALCIUM CARBONATE, COLECALCIFEROL) [Concomitant]
  3. VINORELBINE INN (VINORELBINE TARTRATE) CAPSULE (SOFT) [Suspect]
     Active Substance: VINORELBINE\VINORELBINE TARTRATE
     Indication: BONE DISORDER
     Route: 048
     Dates: start: 201112
  4. GLUCOPHAGE [Concomitant]
     Active Substance: METFORMIN HYDROCHLORIDE
  5. LADOSE (FLUOXETINE HYDROCHLORIDE) [Concomitant]
  6. ZOMETA [Concomitant]
     Active Substance: ZOLEDRONIC ACID
  7. REMERON [Concomitant]
     Active Substance: MIRTAZAPINE
  8. XELODA [Concomitant]
     Active Substance: CAPECITABINE
  9. LYRICA [Concomitant]
     Active Substance: PREGABALIN

REACTIONS (2)
  - Metastases to bone [None]
  - Femur fracture [None]

NARRATIVE: CASE EVENT DATE: 201207
